FAERS Safety Report 8106955 (Version 5)
Quarter: 2013Q4

REPORT INFORMATION
  Report Type: Spontaneous
  Country: US (occurrence: US)
  Receive Date: 20110825
  Receipt Date: 20131202
  Transmission Date: 20140711
  Serious: Yes (Hospitalization)
  Sender: FDA-Public Use
  Company Number: US-BAYER-2011-074938

PATIENT
  Age: 23 Year
  Sex: Female
  Weight: 149.93 kg

DRUGS (13)
  1. YASMIN [Suspect]
     Dosage: UNK
     Route: 048
     Dates: start: 2002
  2. PHENERGAN [Concomitant]
     Dosage: 25 MG, Q 6H
  3. Z-PAK [Concomitant]
  4. CLARITIN [Concomitant]
     Dosage: 10 MG, DAILY
  5. PEN V [Concomitant]
  6. MAGNESIUM [Concomitant]
  7. CERVIDIL [DINOPROSTONE] [Concomitant]
  8. PITOCIN [Concomitant]
  9. AMPICILLIN [Concomitant]
     Dosage: 2 G, IVPB [TIMES 1]
  10. AMP-CLOXACILLIN [Concomitant]
     Dosage: 1 G, Q4HR
  11. VICODIN [Concomitant]
     Dosage: THREE DOSES
  12. KEFZOL [Concomitant]
     Dosage: 2 G, Q 8 H, [TIMES] 3
  13. STADOL [Concomitant]
     Dosage: 1 MG, PRN [RECEIVED 3 DOSES]

REACTIONS (4)
  - Gallbladder injury [None]
  - Cholecystitis chronic [None]
  - Injury [None]
  - Pain [None]
